FAERS Safety Report 4945525-5 (Version None)
Quarter: 2006Q1

REPORT INFORMATION
  Report Type: 
  Country: None (occurrence: None)
  Receive Date: 20060117
  Receipt Date: 20051004
  Transmission Date: 20060701
  Serious: Yes (Other)
  Sender: FDA-Public Use
  Company Number: A03200503169

PATIENT
  Age: 49 Year
  Sex: Male
  Weight: 97.5 kg

DRUGS (7)
  1. PLAVIX [Suspect]
     Indication: CORONARY ARTERY SURGERY
     Dosage: 75 MG QD ORAL
     Route: 048
     Dates: start: 20050901, end: 20051003
  2. ZOCOR [Suspect]
     Indication: CORONARY ARTERY SURGERY
     Dosage: ORAL
     Route: 048
     Dates: start: 20050901
  3. HYDROCHLOROTHIAZIDE [Concomitant]
  4. METOPROLOL SUCCINATE [Concomitant]
  5. IRBASARTAN [Concomitant]
  6. ACETYLSALICYLIC ACID SRT [Concomitant]
  7. VITAMIN E [Concomitant]

REACTIONS (1)
  - ANGIONEUROTIC OEDEMA [None]
